FAERS Safety Report 24254942 (Version 2)
Quarter: 2024Q4

REPORT INFORMATION
  Report Type: Spontaneous
  Country: US (occurrence: US)
  Receive Date: 20240827
  Receipt Date: 20241127
  Transmission Date: 20250115
  Serious: No
  Sender: PFIZER
  Company Number: US-PFIZER INC-PV202400110083

PATIENT
  Age: 62 Year
  Sex: Female

DRUGS (1)
  1. TUKYSA [Suspect]
     Active Substance: TUCATINIB
     Indication: Breast cancer female
     Dosage: 150 MG TAKE TWO BY MOUTH TWICE DAILY
     Route: 048

REACTIONS (2)
  - Neoplasm progression [Not Recovered/Not Resolved]
  - Memory impairment [Unknown]
